FAERS Safety Report 14173532 (Version 2)
Quarter: 2018Q1

REPORT INFORMATION
  Report Type: Spontaneous
  Country: US (occurrence: US)
  Receive Date: 20171109
  Receipt Date: 20180205
  Transmission Date: 20180508
  Serious: Yes (Other)
  Sender: FDA-Public Use
  Company Number: US-PFIZER INC-2017477752

PATIENT
  Age: 63 Year
  Sex: Female

DRUGS (3)
  1. NEURONTIN [Suspect]
     Active Substance: GABAPENTIN
     Dosage: 300 MG, 3X/DAY
     Route: 048
  2. NEURONTIN [Suspect]
     Active Substance: GABAPENTIN
     Indication: NEURALGIA
     Dosage: 100 MG, UNK (100MG CAPSULE FOR UNKNOWN FREQUENCY)
     Route: 048
  3. NEURONTIN [Suspect]
     Active Substance: GABAPENTIN
     Indication: NERVE INJURY
     Dosage: 300MG CAPSULE  TWICE A DAY AND A 200MG CAPSULE BY MOUTH AT NIGHT
     Route: 048

REACTIONS (2)
  - Drug intolerance [Unknown]
  - Drug ineffective for unapproved indication [Not Recovered/Not Resolved]
